FAERS Safety Report 4723901-3 (Version None)
Quarter: 2005Q3

REPORT INFORMATION
  Report Type: 
  Country: None (occurrence: None)
  Receive Date: 20050722
  Receipt Date: 20050714
  Transmission Date: 20060218
  Serious: Yes (Life-Threatening, Hospitalization)
  Sender: FDA-Public Use
  Company Number: COV2-2005-00134

PATIENT
  Age: 47 Year
  Sex: Female
  Weight: 43 kg

DRUGS (4)
  1. FOSRENOL [Suspect]
     Indication: HYPERPHOSPHATAEMIA
     Dosage: 750 MG, 3X/DAY:TID, ORAL
     Route: 048
     Dates: start: 20050601, end: 20050629
  2. DELTASONE [Concomitant]
  3. DIATX            (CYANOCOBALAMIN, FOLIC ACID, PYRIDOXINE) [Concomitant]
  4. LANTUS (INSULIN GLARGINE) VIAL [Concomitant]

REACTIONS (1)
  - ACUTE MYOCARDIAL INFARCTION [None]
